FAERS Safety Report 7184931-8 (Version None)
Quarter: 2010Q4

REPORT INFORMATION
  Report Type: 
  Country: None (occurrence: None)
  Receive Date: 20101222
  Receipt Date: 20100527
  Transmission Date: 20110411
  Serious: No
  Sender: FDA-Public Use
  Company Number: US-AMGEN-KDL415029

PATIENT

DRUGS (8)
  1. ENBREL [Suspect]
     Indication: RHEUMATOID ARTHRITIS
     Dosage: 25 MG, 2 TIMES/WK
     Route: 058
  2. DEXTROPROPOXYPHENE NAPSILATE W/ ACETAMINOPHEN [Concomitant]
     Dosage: UNK UNK, UNK
  3. AMOXICILLIN [Concomitant]
     Dosage: 250 MG, UNK
  4. DIAZEPAM [Concomitant]
     Dosage: 5 MG, UNK
  5. LEVOTHYROXINE SODIUM [Concomitant]
     Dosage: 150 A?G, UNK
  6. CALCIUM [Concomitant]
     Dosage: UNK UNK, UNK
  7. MULTI-VITAMINS [Concomitant]
     Dosage: UNK UNK, UNK
  8. LOVAZA [Concomitant]
     Dosage: 1000 MG, UNK

REACTIONS (1)
  - HERPES ZOSTER [None]
